FAERS Safety Report 22077968 (Version 4)
Quarter: 2023Q4

REPORT INFORMATION
  Report Type: Report from Study
  Country: UY (occurrence: UY)
  Receive Date: 20230309
  Receipt Date: 20231227
  Transmission Date: 20240110
  Serious: Yes (Other)
  Sender: FDA-Public Use
  Company Number: UY-ABBVIE-4331669

PATIENT
  Age: 58 Year

DRUGS (18)
  1. UPADACITINIB [Suspect]
     Active Substance: UPADACITINIB
     Indication: Product used for unknown indication
     Route: 048
     Dates: start: 20220222
  2. UPADACITINIB [Suspect]
     Active Substance: UPADACITINIB
     Indication: Product used for unknown indication
     Route: 048
     Dates: start: 20220113
  3. FOLIC ACID [Concomitant]
     Active Substance: FOLIC ACID
     Indication: Prophylaxis
     Dates: start: 202103
  4. BISOPROLOL [Concomitant]
     Active Substance: BISOPROLOL\BISOPROLOL FUMARATE
     Indication: Ischaemic cardiomyopathy
     Dates: start: 20230223
  5. PMS ESTRADIOL VALERATE [Concomitant]
     Indication: Prophylaxis
     Dates: start: 20230609, end: 20230718
  6. LERCANIDIPINE [Concomitant]
     Active Substance: LERCANIDIPINE
     Indication: Ischaemic cardiomyopathy
     Dates: start: 20230410
  7. PREDNISONE [Concomitant]
     Active Substance: PREDNISONE
     Indication: Rheumatoid arthritis
     Dates: start: 202108, end: 202204
  8. METHOTREXATE [Concomitant]
     Active Substance: METHOTREXATE
     Indication: Rheumatoid arthritis
     Dates: start: 202103
  9. ESTRADIOL VALERATE [Concomitant]
     Active Substance: ESTRADIOL VALERATE
     Indication: Prophylaxis
     Dates: start: 20230609, end: 20230718
  10. ATORVASTATIN [Concomitant]
     Active Substance: ATORVASTATIN
     Indication: Dyslipidaemia
     Dates: start: 20210402, end: 20230223
  11. AZITHROMYCIN [Concomitant]
     Active Substance: AZITHROMYCIN
     Indication: Prophylaxis
     Dates: start: 20220517, end: 20220523
  12. ASPIRIN [Concomitant]
     Active Substance: ASPIRIN
     Indication: Prophylaxis
     Dates: start: 20230223
  13. ISONIAZID [Concomitant]
     Active Substance: ISONIAZID
     Indication: Prophylaxis
     Dates: start: 20220117, end: 20221026
  14. Atenolol Hydrochlorothiazide [Concomitant]
     Indication: Hypertension
     Dosage: (HYDROCLOROTIAZIDE)?ATENOLOL/HYDROCLOROTIAZIDE: 50/12,5 (MG)
     Dates: start: 20180301, end: 20230223
  15. PITAVASTATIN [Concomitant]
     Active Substance: PITAVASTATIN
     Indication: Ischaemic cardiomyopathy
     Dates: start: 20230223
  16. AMLODIPINE BESYLATE [Concomitant]
     Active Substance: AMLODIPINE BESYLATE
     Indication: Ischaemic cardiomyopathy
     Dates: start: 20230223, end: 20230410
  17. VITAMIN D3 [Concomitant]
     Active Substance: CHOLECALCIFEROL
     Indication: Prophylaxis
     Dates: start: 20220420
  18. METFORMIN [Concomitant]
     Active Substance: METFORMIN HYDROCHLORIDE
     Indication: Hyperinsulinism
     Dates: start: 20200304

REACTIONS (2)
  - Ischaemic cardiomyopathy [Recovered/Resolved with Sequelae]
  - Respiratory disorder [Recovered/Resolved]

NARRATIVE: CASE EVENT DATE: 20220517
